FAERS Safety Report 5834799-4 (Version None)
Quarter: 2008Q3

REPORT INFORMATION
  Report Type: 
  Country: None (occurrence: None)
  Receive Date: 20080801
  Receipt Date: 20080728
  Transmission Date: 20090109
  Serious: Yes (Life-Threatening, Other)
  Sender: FDA-Public Use
  Company Number: 167-21880-08040299

PATIENT
  Age: 65 Year
  Sex: Female

DRUGS (5)
  1. REVLIMID [Suspect]
     Indication: MULTIPLE MYELOMA
     Dosage: 15 MG, ALTERNATE DAYS, ORAL
     Route: 048
     Dates: start: 20080131, end: 20080218
  2. DEXAMETHASONE TAB [Concomitant]
  3. ENOXAPARIN SODIUM [Concomitant]
  4. DARBEPOETIN (DARBEPOETIN ALFA) [Concomitant]
  5. BACTRIM [Concomitant]

REACTIONS (5)
  - DISEASE PROGRESSION [None]
  - MULTIPLE MYELOMA [None]
  - PANCYTOPENIA [None]
  - RENAL FAILURE [None]
  - RENAL IMPAIRMENT [None]
